FAERS Safety Report 16393660 (Version 3)
Quarter: 2019Q2

REPORT INFORMATION
  Report Type: Spontaneous
  Country: US (occurrence: US)
  Receive Date: 20190605
  Receipt Date: 20190610
  Transmission Date: 20190711
  Serious: No
  Sender: FDA-Public Use
  Company Number: US-PFIZER INC-2019234286

PATIENT
  Age: 71 Year
  Sex: Female
  Weight: 48 kg

DRUGS (4)
  1. VFEND [Suspect]
     Active Substance: VORICONAZOLE
     Indication: FUNGAL INFECTION
     Dosage: 600 MG, DAILY (ONE AM, TWO PM)/(200 MG IN THE MORNING 400 AT THE NIGHT)
     Dates: start: 201901
  2. FOSAMAX [Concomitant]
     Active Substance: ALENDRONATE SODIUM
     Dosage: 70 MG, UNK
  3. VFEND [Suspect]
     Active Substance: VORICONAZOLE
     Indication: SCEDOSPORIUM INFECTION
     Dosage: 200 MG, 2X/DAY (200 MG IN THE MORNING AND 200 MG IN THE EVENING )
  4. VFEND [Suspect]
     Active Substance: VORICONAZOLE
     Indication: ASPERGILLUS INFECTION
     Dosage: 300 MG, DAILY (100 MG IN THE MORNING AND 200 MG IN THE EVENING)

REACTIONS (4)
  - Drug level increased [Unknown]
  - Off label use [Unknown]
  - Product use issue [Unknown]
  - Drug level abnormal [Unknown]
